FAERS Safety Report 4383849-3 (Version None)
Quarter: 2004Q2

REPORT INFORMATION
  Report Type: 
  Country: None (occurrence: None)
  Receive Date: 20040615
  Receipt Date: 20031215
  Transmission Date: 20050107
  Serious: Yes (Other)
  Sender: FDA-Public Use
  Company Number: 2003US005583

PATIENT
  Age: 63 Year
  Sex: Female
  Weight: 69.4 kg

DRUGS (2)
  1. PROGRAF [Suspect]
     Indication: LIVER TRANSPLANT
     Dosage: 3 MG, BID
     Dates: start: 20021001
  2. CELLCEPT [Concomitant]

REACTIONS (2)
  - BREAST CANCER [None]
  - TREMOR [None]
